FAERS Safety Report 4802386-2 (Version None)
Quarter: 2005Q4

REPORT INFORMATION
  Report Type: 
  Country: None (occurrence: None)
  Receive Date: 20051013
  Receipt Date: 20051001
  Transmission Date: 20060501
  Serious: Yes (Other)
  Sender: FDA-Public Use
  Company Number: 2005137627

PATIENT
  Sex: Female
  Weight: 48.0813 kg

DRUGS (4)
  1. CETIRIZINE HCL [Suspect]
     Indication: MULTIPLE ALLERGIES
     Dosage: 1 IN 1 D
  2. AVELOX [Concomitant]
  3. ADVIL COLD + SINS (IBUPROFEN, PSEUDOEPHEDRINE HYDROCHLORIDE) [Concomitant]
  4. NASAL SALINE (SODIUM CHLORIDE) [Concomitant]

REACTIONS (1)
  - DRUG INEFFECTIVE [None]
